FAERS Safety Report 9522964 (Version 1)
Quarter: 2013Q1

REPORT INFORMATION
  Report Type: Spontaneous
  Country: US (occurrence: None)
  Receive Date: 20130305
  Receipt Date: 20130305
  Transmission Date: 20140127
  Serious: Yes (Other)
  Sender: FDA-Public Use
  Company Number: 163-21880-12072726

PATIENT
  Age: 68 Year
  Sex: Female

DRUGS (6)
  1. REVLIMID (LENALIDOMIDE) (25 MILLIGRAM, CAPSULES) [Suspect]
     Indication: PLASMA CELL MYELOMA
     Dosage: 1 IN 1 D
     Route: 048
     Dates: start: 20120118
  2. VELCADE [Concomitant]
  3. DEXAMETHASONE (DEXAMETHASONE) (UNKNOWN) [Concomitant]
  4. LISINOPRIL (LISINOPRIL) (UNKNOWN) [Concomitant]
  5. BACTRIM DS (BACTRIM) (UNKNOWN) [Concomitant]
  6. VALTREX (VALACICLOVIR) (UNKNOWN) [Concomitant]

REACTIONS (4)
  - Platelet count decreased [None]
  - Diarrhoea [None]
  - Fatigue [None]
  - White blood cell count decreased [None]
